FAERS Safety Report 24844069 (Version 1)
Quarter: 2025Q1

REPORT INFORMATION
  Report Type: Spontaneous
  Country: US (occurrence: US)
  Receive Date: 20250115
  Receipt Date: 20250115
  Transmission Date: 20250409
  Serious: Yes (Other)
  Sender: AUROBINDO
  Company Number: US-AUROBINDO-AUR-APL-2025-001775

PATIENT
  Age: 46 Year
  Sex: Male

DRUGS (1)
  1. SEVELAMER CARBONATE [Suspect]
     Active Substance: SEVELAMER CARBONATE
     Indication: Hyperphosphataemia
     Dosage: 2.4 GRAM, ONCE A DAY
     Route: 065

REACTIONS (3)
  - Colitis [Recovered/Resolved]
  - Duodenitis [Recovered/Resolved]
  - Gastrointestinal disorder [Recovered/Resolved]
